FAERS Safety Report 18053693 (Version 1)
Quarter: 2020Q3

REPORT INFORMATION
  Report Type: Spontaneous
  Country: PT (occurrence: PT)
  Receive Date: 20200722
  Receipt Date: 20200722
  Transmission Date: 20201103
  Serious: Yes (Other)
  Sender: FDA-Public Use
  Company Number: PT-ACCORD-191769

PATIENT
  Age: 35 Year
  Sex: Female

DRUGS (11)
  1. METHOTREXATE. [Suspect]
     Active Substance: METHOTREXATE
     Indication: ACUTE LEUKAEMIA
     Dosage: 12 MG, DAY 2
     Route: 037
     Dates: start: 201305, end: 201311
  2. CYCLOPHOSPHAMIDE/CYCLOPHOSPHAMIDE MONOHYDRATE [Suspect]
     Active Substance: CYCLOPHOSPHAMIDE
     Indication: ACUTE LEUKAEMIA
     Dosage: 300 MG/M2, CYCLICAL (12/12H, DAYS 1 TO 3 2 IN 1 D)
     Route: 065
     Dates: start: 201305, end: 201311
  3. VINCRISTINE [Suspect]
     Active Substance: VINCRISTINE
     Indication: ACUTE LEUKAEMIA
     Dosage: 2 MG, CYCLIC (DAYS 4 AND 11)
     Route: 065
     Dates: start: 201305, end: 201311
  4. DEXAMETHASONE. [Suspect]
     Active Substance: DEXAMETHASONE
     Indication: ACUTE LEUKAEMIA
     Dosage: 40 MG, CYCLIC (DAYS 1 TO 4 AND DAYS 11 TO 14)
     Route: 065
     Dates: start: 201305, end: 201311
  5. DOXORUBICIN [Suspect]
     Active Substance: DOXORUBICIN
     Indication: ACUTE LEUKAEMIA
     Dosage: 50 MG/M2, CYCLICAL (DAYS 4 )
     Route: 065
     Dates: start: 201305, end: 201311
  6. METHOTREXATE. [Suspect]
     Active Substance: METHOTREXATE
     Indication: ACUTE LEUKAEMIA
     Dosage: 1000 MG/M2, CYCLIC (DAY 1)
     Route: 065
     Dates: start: 201305, end: 201311
  7. CYTARABINE/CYTARABINE HYDROCHLORIDE/CYTARABINE OCFOSFATE [Suspect]
     Active Substance: CYTARABINE
     Indication: ACUTE LEUKAEMIA
     Dosage: 100 MG, CYCLIC, DAYS 7 OR 8
     Route: 037
     Dates: start: 201305, end: 201311
  8. CYTARABINE/CYTARABINE HYDROCHLORIDE/CYTARABINE OCFOSFATE [Suspect]
     Active Substance: CYTARABINE
     Indication: ACUTE LEUKAEMIA
     Dosage: 3000 MG/M2, CYCLICAL (12/12H, DAYS 2 AND 3)
     Route: 065
     Dates: start: 201305, end: 201311
  9. MESNA. [Suspect]
     Active Substance: MESNA
     Indication: ACUTE LEUKAEMIA
     Dosage: 600 MG/M2, CYCLIC (DAYS 1 TO 3)
     Route: 065
     Dates: start: 201305, end: 201311
  10. FOLINIC ACID [Suspect]
     Active Substance: LEUCOVORIN
     Indication: ACUTE LEUKAEMIA
     Dosage: DOSAGE FORM: UNSPECIFIED
     Route: 065
  11. METHYLPREDNISOLONE. [Suspect]
     Active Substance: METHYLPREDNISOLONE
     Indication: ACUTE LEUKAEMIA
     Dosage: DOSAGE FORM: UNSPECIFIED
     Route: 065

REACTIONS (3)
  - Febrile neutropenia [Unknown]
  - Neoplasm recurrence [Unknown]
  - Mucosal inflammation [Unknown]

NARRATIVE: CASE EVENT DATE: 2013
